FAERS Safety Report 9382025 (Version 3)
Quarter: 2013Q3

REPORT INFORMATION
  Report Type: Spontaneous
  Country: IT (occurrence: IT)
  Receive Date: 20130703
  Receipt Date: 20130717
  Transmission Date: 20140515
  Serious: Yes (Other)
  Sender: FDA-Public Use
  Company Number: IT-PFIZER INC-2013194858

PATIENT
  Age: 78 Year
  Sex: Female

DRUGS (7)
  1. TRIATEC [Suspect]
     Indication: HYPERTENSION
     Dosage: 1 DF, 1X/DAY
     Route: 048
     Dates: start: 20130401, end: 20130518
  2. DILZENE [Concomitant]
  3. CARDIOASPIRIN [Concomitant]
  4. SPIRIVA RESPIMAT [Concomitant]
  5. CARDURA [Concomitant]
  6. SPIRIVA [Concomitant]
  7. LANSOX [Concomitant]

REACTIONS (8)
  - Asthenia [Recovering/Resolving]
  - Bradycardia [Recovering/Resolving]
  - Hyperkalaemia [Recovering/Resolving]
  - Blood pressure systolic increased [Unknown]
  - Blood pressure diastolic decreased [Unknown]
  - Hypoglycaemia [Unknown]
  - Malaise [Recovering/Resolving]
  - Hyponatraemia [Recovering/Resolving]
